FAERS Safety Report 8507262-X (Version None)
Quarter: 2012Q3

REPORT INFORMATION
  Report Type: 
  Country: None (occurrence: None)
  Receive Date: 20120712
  Receipt Date: 20120710
  Transmission Date: 20120928
  Serious: Yes (Death, Other)
  Sender: FDA-Public Use
  Company Number: US-ROCHE-1019949

PATIENT
  Age: 59 Year
  Sex: Male
  Weight: 104.36 kg

DRUGS (16)
  1. METHOTREXATE [Concomitant]
     Indication: RHEUMATOID ARTHRITIS
     Route: 048
     Dates: end: 20111201
  2. LOVENOX [Concomitant]
     Indication: DEEP VEIN THROMBOSIS
     Route: 058
     Dates: start: 20111111, end: 20111125
  3. ZITHROMAX [Concomitant]
     Indication: SINUSITIS
     Dates: start: 20110209, end: 20120213
  4. ACTEMRA [Suspect]
     Indication: RHEUMATOID ARTHRITIS
     Dosage: MOST RECENT DOSE TAKEN ON 26 OCT 2011
     Route: 058
     Dates: start: 20110803
  5. METHOTREXATE [Concomitant]
     Dates: start: 20111221
  6. EXTRA STRENGTH TYLENOL [Concomitant]
     Indication: RHEUMATOID ARTHRITIS
     Dates: start: 20080101
  7. WARFARIN SODIUM [Concomitant]
     Indication: DEEP VEIN THROMBOSIS
     Dosage: ON MONDAY THROUGH SATURDAY
     Dates: start: 20111216
  8. ASPIRIN [Concomitant]
     Indication: CARDIOVASCULAR EVENT PROPHYLAXIS
     Dates: start: 20080101
  9. WARFARIN SODIUM [Concomitant]
     Dosage: SUNDAY
     Dates: start: 20111216
  10. FOLIC ACID [Concomitant]
     Indication: RHEUMATOID ARTHRITIS
     Route: 048
     Dates: start: 19990101
  11. PREDNISONE [Concomitant]
     Indication: RHEUMATOID ARTHRITIS
     Route: 048
     Dates: start: 19990101
  12. MULTI-VITAMIN [Concomitant]
     Dates: start: 20080101
  13. ZESTORETIC [Concomitant]
     Indication: HYPERTENSION
     Dates: start: 19980101
  14. VIAGRA [Concomitant]
     Indication: ERECTILE DYSFUNCTION
     Dates: start: 20110715
  15. AVELOX [Concomitant]
     Indication: SINUSITIS
     Route: 048
     Dates: start: 20120215
  16. ACTEMRA [Suspect]
     Indication: RHEUMATOID ARTHRITIS
     Dosage: MOST RECENT DOSE PRIOR TO SAE: 01/FEB/2012
     Route: 058
     Dates: start: 20120118

REACTIONS (2)
  - DEEP VEIN THROMBOSIS [None]
  - ANGINA PECTORIS [None]
